FAERS Safety Report 10271214 (Version 1)
Quarter: 2014Q1

REPORT INFORMATION
  Report Type: Spontaneous
  Country: US (occurrence: None)
  Receive Date: 20140306
  Receipt Date: 20140306
  Transmission Date: 20141002
  Serious: Yes (Other)
  Sender: FDA-Public Use
  Company Number: 163-21880-13081480

PATIENT
  Age: 76 Year
  Sex: Female
  Weight: 56.7 kg

DRUGS (14)
  1. REVLIMID [Suspect]
     Indication: PLASMA CELL MYELOMA
     Route: 048
     Dates: start: 201008
  2. HYDRALAZINE (HYDRALAZINE) (TABLETS) [Concomitant]
  3. KLOR-CON (POTASSIUM CHLORIDE) (TABLETS) [Concomitant]
  4. FELODIPINE ER (FELODIPINE) (TABLETS) [Concomitant]
  5. ZETIA (EZETIMIBE) (TABLETS) [Concomitant]
  6. OMEPRAZOLE (OMEPRAZOLE) (TABLETS) [Concomitant]
  7. LOSARTAN HCTZ (HYZAAR) (TABLETS) [Concomitant]
  8. DEXAMETHASONE (DEXAMETHASONE) [Concomitant]
  9. FUROSEMIDE (FUROSEMIDE) (TABLETS) [Concomitant]
  10. ATENOLOL (ATENOLOL) (TABLETS) [Concomitant]
  11. METFORMIN (METFORMIN) [Concomitant]
  12. SIMVASTATIN (SIMVASTATIN) (TABLETS) [Concomitant]
  13. HYDROCODONE/ACETAMINOPHEN (REMEDEINE) (SOLUTION) [Concomitant]
  14. GLIPIZIDE (GLIPIZIDE) (TABLETS) [Concomitant]

REACTIONS (2)
  - Haemoglobin decreased [None]
  - Haematocrit decreased [None]
